FAERS Safety Report 9546846 (Version 2)
Quarter: 2013Q4

REPORT INFORMATION
  Report Type: Spontaneous
  Country: US (occurrence: US)
  Receive Date: 20130924
  Receipt Date: 20131029
  Transmission Date: 20140711
  Serious: Yes (Disabling)
  Sender: FDA-Public Use
  Company Number: US-009507513-1309USA009244

PATIENT
  Age: 35 Year
  Sex: Male
  Weight: 75 kg

DRUGS (3)
  1. ISENTRESS [Suspect]
     Indication: HIV INFECTION
     Dosage: 400 MG, BID
     Route: 048
     Dates: start: 201207, end: 201210
  2. TRUVADA [Concomitant]
     Dosage: UNK
     Dates: start: 201206
  3. SEPTRA [Concomitant]
     Dosage: UNK
     Dates: end: 201209

REACTIONS (4)
  - Gingivitis ulcerative [Recovered/Resolved]
  - Neutropenia [Recovered/Resolved]
  - Gingival pain [Recovered/Resolved]
  - Oral pain [Recovered/Resolved]
